FAERS Safety Report 15566468 (Version 1)
Quarter: 2018Q4

REPORT INFORMATION
  Report Type: Spontaneous
  Country: US (occurrence: US)
  Receive Date: 20181025
  Receipt Date: 20181025
  Transmission Date: 20190205
  Serious: No
  Sender: FDA-Public Use
  Company Number: None

PATIENT
  Age: 46 Year
  Sex: Female

DRUGS (4)
  1. TAMOXIFEN [Concomitant]
     Active Substance: TAMOXIFEN
  2. TAXOL [Concomitant]
     Active Substance: PACLITAXEL
  3. PERJETA [Concomitant]
     Active Substance: PERTUZUMAB
  4. HERCEPTIN [Suspect]
     Active Substance: TRASTUZUMAB
     Route: 042
     Dates: start: 201809

REACTIONS (1)
  - Metastases to skin [None]

NARRATIVE: CASE EVENT DATE: 20181024
